FAERS Safety Report 12329397 (Version 2)
Quarter: 2016Q2

REPORT INFORMATION
  Report Type: Report from Study
  Country: US (occurrence: US)
  Receive Date: 20160503
  Receipt Date: 20160511
  Transmission Date: 20160815
  Serious: Yes (Hospitalization)
  Sender: FDA-Public Use
  Company Number: US-ACTELION-A-NJ2016-133646

PATIENT
  Age: 64 Year
  Sex: Female
  Weight: 109.75 kg

DRUGS (6)
  1. PRAVASTATIN [Concomitant]
     Active Substance: PRAVASTATIN\PRAVASTATIN SODIUM
     Dosage: 10 MG, QD
  2. PRILOSEC [Concomitant]
     Active Substance: OMEPRAZOLE MAGNESIUM
     Dosage: 20 MG, QD
  3. MACITENTAN [Suspect]
     Active Substance: MACITENTAN
     Indication: PULMONARY ARTERIAL HYPERTENSION
     Dosage: 10 MG, QD
     Route: 048
     Dates: start: 201603
  4. REMODULIN [Suspect]
     Active Substance: TREPROSTINIL
     Indication: PULMONARY ARTERIAL HYPERTENSION
     Dosage: 39 NG/KG, UNK
     Route: 042
     Dates: start: 201512
  5. RIOCIGUAT [Concomitant]
     Active Substance: RIOCIGUAT
  6. REVATIO [Concomitant]
     Active Substance: SILDENAFIL CITRATE
     Dosage: 20 MG, TID
     Dates: start: 201601

REACTIONS (10)
  - Acute kidney injury [Recovered/Resolved]
  - Dyspnoea [Recovering/Resolving]
  - Dyspnoea exertional [Unknown]
  - Dehydration [Recovered/Resolved]
  - Nausea [Unknown]
  - Asthenia [Not Recovered/Not Resolved]
  - Blood potassium decreased [Unknown]
  - Pulmonary arterial hypertension [Recovering/Resolving]
  - Diarrhoea [Recovering/Resolving]
  - Oedema [Recovering/Resolving]

NARRATIVE: CASE EVENT DATE: 201603
